FAERS Safety Report 16833818 (Version 1)
Quarter: 2019Q3

REPORT INFORMATION
  Report Type: Spontaneous
  Country: US (occurrence: US)
  Receive Date: 20190920
  Receipt Date: 20190920
  Transmission Date: 20191005
  Serious: No
  Sender: FDA-Public Use
  Company Number: US-ADAMAS PHARMA, LLC-2019ADA01524

PATIENT
  Sex: Male

DRUGS (2)
  1. GOCOVRI [Suspect]
     Active Substance: AMANTADINE
     Indication: DYSKINESIA
     Dosage: 274 MG, 1X/DAY, AT BEDTIME
     Route: 048
     Dates: start: 20190322
  2. UNSPECIFIED LEVODOPA-BASED THERAPY [Concomitant]

REACTIONS (1)
  - Insomnia [Unknown]

NARRATIVE: CASE EVENT DATE: 2019
